FAERS Safety Report 16433710 (Version 4)
Quarter: 2019Q3

REPORT INFORMATION
  Report Type: Spontaneous
  Country: US (occurrence: US)
  Receive Date: 20190614
  Receipt Date: 20190805
  Transmission Date: 20191004
  Serious: Yes (Hospitalization, Other)
  Sender: FDA-Public Use
  Company Number: US-PFIZER INC-2019249094

PATIENT
  Age: 66 Year
  Sex: Female
  Weight: 61.22 kg

DRUGS (5)
  1. NORCO [Concomitant]
     Active Substance: ACETAMINOPHEN\HYDROCODONE BITARTRATE
     Indication: PAIN
     Dosage: UNK, AS NEEDED (5MG OF HYDROCODONE/325MG OF ACETAMINOPHEN, TABLET, BY MOUTH, AS NEEDED)
     Route: 048
  2. ZOLPIDEM [Concomitant]
     Active Substance: ZOLPIDEM TARTRATE
     Indication: SLEEP DISORDER
     Dosage: 10 MG, 1X/DAY (ONCE AT NIGHT)
     Route: 048
  3. WARFARIN [Concomitant]
     Active Substance: WARFARIN
     Dosage: 5 MG, 1X/DAY ON THE REST OF THE DAYS
     Route: 048
  4. LORBRENA [Suspect]
     Active Substance: LORLATINIB
     Indication: LUNG CARCINOMA CELL TYPE UNSPECIFIED STAGE IV
     Dosage: 100 MG, 1X/DAY
     Route: 048
     Dates: start: 2019, end: 20190705
  5. WARFARIN [Concomitant]
     Active Substance: WARFARIN
     Indication: THROMBOSIS
     Dosage: 2.5 MG, DAILY ON MONDAYS AND WEDNESDAYS
     Route: 048

REACTIONS (4)
  - Pain [Unknown]
  - International normalised ratio abnormal [Unknown]
  - White blood cell count increased [Recovered/Resolved]
  - Sepsis [Unknown]
